FAERS Safety Report 24454373 (Version 2)
Quarter: 2024Q4

REPORT INFORMATION
  Report Type: Report from Study
  Country: DE (occurrence: DE)
  Receive Date: 20241017
  Receipt Date: 20241018
  Transmission Date: 20250114
  Serious: No
  Sender: ROCHE
  Company Number: DE-ROCHE-3449049

PATIENT
  Age: 54 Year
  Sex: Male

DRUGS (8)
  1. RITUXIMAB [Suspect]
     Active Substance: RITUXIMAB
     Indication: Neuromyelitis optica spectrum disorder
     Dosage: MAINTENANCE DOSE: 06/OCT/2023? FREQUENCY TEXT:196 DAYS
     Route: 041
     Dates: start: 20230324
  2. ENSPRYNG [Suspect]
     Active Substance: SATRALIZUMAB-MWGE
     Indication: Neuromyelitis optica spectrum disorder
     Route: 042
     Dates: start: 20230323
  3. XIGDUO XR [Concomitant]
     Active Substance: DAPAGLIFLOZIN PROPANEDIOL\METFORMIN HYDROCHLORIDE
  4. ALLOPURINOL [Concomitant]
     Active Substance: ALLOPURINOL
  5. TAMSULOSIN [Concomitant]
     Active Substance: TAMSULOSIN
  6. TILIDINE [Concomitant]
     Active Substance: TILIDINE
  7. PREGABALIN [Concomitant]
     Active Substance: PREGABALIN
  8. LEVODOPA [Concomitant]
     Active Substance: LEVODOPA

REACTIONS (11)
  - Off label use [Unknown]
  - Onychoclasis [Unknown]
  - Alopecia [Recovered/Resolved]
  - Hair growth abnormal [Recovered/Resolved]
  - Muscular weakness [Not Recovered/Not Resolved]
  - Rhinalgia [Recovering/Resolving]
  - Epistaxis [Recovered/Resolved]
  - Sneezing [Recovered/Resolved]
  - Nasal discomfort [Recovering/Resolving]
  - Pain [Unknown]
  - Lumbar spinal stenosis [Not Recovered/Not Resolved]

NARRATIVE: CASE EVENT DATE: 20230324
